FAERS Safety Report 9551617 (Version 1)
Quarter: 2013Q2

REPORT INFORMATION
  Report Type: Spontaneous
  Country: US (occurrence: None)
  Receive Date: 20130627
  Receipt Date: 20130627
  Transmission Date: 20140414
  Serious: Yes (Other)
  Sender: FDA-Public Use
  Company Number: 1000044075

PATIENT
  Age: 47 Year
  Sex: Female

DRUGS (3)
  1. LINZESS (LINACLOTIDE) (290 MICROGRAM, CAPSULES) [Suspect]
     Indication: CONSTIPATION
     Route: 048
     Dates: start: 20130212
  2. MTV (VITAMINS NOS) [Concomitant]
  3. METAMUCIL [Concomitant]

REACTIONS (1)
  - Drug ineffective [None]
